FAERS Safety Report 9019397 (Version 3)
Quarter: 2013Q2

REPORT INFORMATION
  Report Type: Spontaneous
  Country: US (occurrence: US)
  Receive Date: 20130118
  Receipt Date: 20130509
  Transmission Date: 20140414
  Serious: Yes (Hospitalization, Other)
  Sender: FDA-Public Use
  Company Number: US-PURDUE-USA-2013-0097687

PATIENT
  Age: 53 Year
  Sex: Male
  Weight: 99.77 kg

DRUGS (17)
  1. OXYCONTIN (NDA 22-272) [Suspect]
     Indication: NECK PAIN
     Dosage: 40 MG, Q12H
     Route: 048
     Dates: end: 20130420
  2. OXYCONTIN (NDA 22-272) [Suspect]
     Indication: MUSCULOSKELETAL PAIN
  3. EFFEXOR XR [Suspect]
     Indication: DEPRESSION
     Dosage: 150 MG, DAILY
     Route: 048
  4. DEPLIN [Suspect]
     Indication: PRODUCT USED FOR UNKNOWN INDICATION
     Dosage: 7.5 MG, UNK
     Route: 048
  5. ZANAFLEX [Suspect]
     Indication: PRODUCT USED FOR UNKNOWN INDICATION
     Dosage: 4 MG, UNK
     Route: 048
  6. AMBIEN CR [Concomitant]
     Indication: INSOMNIA
     Dosage: 12.5 MG, UNK
     Route: 048
  7. AMBIEN CR [Concomitant]
     Dosage: 10 MG, DAILY
  8. OPANA [Concomitant]
     Indication: PAIN
     Dosage: 40 MG, BID
  9. CLONIDINE [Concomitant]
     Indication: PRODUCT USED FOR UNKNOWN INDICATION
     Dosage: 0.1 MG, UNK
     Route: 048
  10. LOVAZA [Concomitant]
     Indication: PRODUCT USED FOR UNKNOWN INDICATION
     Dosage: 1 G, UNK
     Route: 048
  11. METHADONE [Concomitant]
     Indication: PAIN
     Dosage: 10 MG, UNK
     Route: 048
  12. METHADONE [Concomitant]
     Dosage: 40 MG, DAILY
  13. MIRALAX                            /00754501/ [Concomitant]
     Indication: PRODUCT USED FOR UNKNOWN INDICATION
     Dosage: 17 G, UNK
     Route: 048
  14. NAPROXEN [Concomitant]
     Indication: PRODUCT USED FOR UNKNOWN INDICATION
     Dosage: 375 MG, UNK
     Route: 048
  15. NEURONTIN [Concomitant]
     Indication: NEURALGIA
     Dosage: 800 MG, UNK
     Route: 048
  16. MELATONIN [Concomitant]
     Indication: PRODUCT USED FOR UNKNOWN INDICATION
     Dosage: 3 MG, QOD
  17. BISCODYL [Concomitant]
     Indication: LAXATIVE SUPPORTIVE CARE
     Dosage: UNK

REACTIONS (33)
  - Respiratory failure [Unknown]
  - High frequency ablation [Unknown]
  - Spinal osteoarthritis [Unknown]
  - Peripheral nerve destruction [Unknown]
  - Loss of consciousness [Recovered/Resolved]
  - Blindness [Unknown]
  - Dyspnoea [Not Recovered/Not Resolved]
  - Blood pressure increased [Not Recovered/Not Resolved]
  - Joint range of motion decreased [Unknown]
  - Fall [Unknown]
  - Heart rate increased [Unknown]
  - Cold sweat [Unknown]
  - Chest pain [Unknown]
  - Heart rate irregular [Unknown]
  - Cardiac disorder [Unknown]
  - General physical health deterioration [Unknown]
  - Contusion [Unknown]
  - Muscle spasms [Unknown]
  - Unevaluable event [Unknown]
  - Neck pain [Unknown]
  - Pain in extremity [Unknown]
  - Pain [Unknown]
  - Tenderness [Unknown]
  - Inadequate analgesia [Unknown]
  - Depression [Unknown]
  - Tremor [Unknown]
  - Headache [Unknown]
  - Dizziness [Unknown]
  - Nausea [Unknown]
  - Vision blurred [Unknown]
  - Constipation [Unknown]
  - Dehydration [Unknown]
  - Heart rate decreased [Unknown]
